FAERS Safety Report 12330812 (Version 1)
Quarter: 2016Q2

REPORT INFORMATION
  Report Type: Spontaneous
  Country: US (occurrence: None)
  Receive Date: 20160503
  Receipt Date: 20160503
  Transmission Date: 20160815
  Serious: Yes (Hospitalization)
  Sender: FDA-Public Use
  Company Number: None

PATIENT
  Age: 15 Year
  Sex: Female
  Weight: 47 kg

DRUGS (7)
  1. VINCRISTINE SULFATE. [Suspect]
     Active Substance: VINCRISTINE SULFATE
     Dates: end: 20160411
  2. CYTARABINE. [Suspect]
     Active Substance: CYTARABINE
     Dates: end: 20160321
  3. ONCASPAR [Suspect]
     Active Substance: PEGASPARGASE
     Dosage: 3500 UNIT
     Dates: end: 20160324
  4. PREDNISONE. [Suspect]
     Active Substance: PREDNISONE
     Dates: end: 20160321
  5. DEXAMETHASONE. [Suspect]
     Active Substance: DEXAMETHASONE
     Dates: end: 20160418
  6. DAUNORUBICIN [Suspect]
     Active Substance: DAUNORUBICIN
     Dates: end: 20160411
  7. METHOTREXATE [Suspect]
     Active Substance: METHOTREXATE
     Dates: end: 20160418

REACTIONS (2)
  - Pilonidal cyst [None]
  - Bacterial test positive [None]

NARRATIVE: CASE EVENT DATE: 20160425
